FAERS Safety Report 9463504 (Version 2)
Quarter: 2013Q4

REPORT INFORMATION
  Report Type: Report from Study
  Country: FR (occurrence: FR)
  Receive Date: 20130819
  Receipt Date: 20131202
  Transmission Date: 20140711
  Serious: Yes (Hospitalization)
  Sender: FDA-Public Use
  Company Number: FR-ROCHE-1261942

PATIENT
  Age: 80 Year
  Sex: Male
  Weight: 77 kg

DRUGS (32)
  1. BENDAMUSTINE [Suspect]
     Route: 041
     Dates: start: 20120903
  2. BENDAMUSTINE [Suspect]
     Route: 041
     Dates: start: 20121015
  3. BORTEZOMIB [Suspect]
     Indication: MANTLE CELL LYMPHOMA
     Route: 058
     Dates: start: 20120404, end: 20121225
  4. BORTEZOMIB [Suspect]
     Route: 058
     Dates: start: 20120510
  5. BORTEZOMIB [Suspect]
     Route: 058
     Dates: start: 20120619
  6. BORTEZOMIB [Suspect]
     Route: 058
     Dates: start: 20120730
  7. BORTEZOMIB [Suspect]
     Route: 058
     Dates: start: 20120903
  8. BORTEZOMIB [Suspect]
     Route: 058
     Dates: start: 20121015
  9. DEXAMETHASONE [Suspect]
     Indication: MANTLE CELL LYMPHOMA
     Route: 041
     Dates: start: 20120404, end: 20121216
  10. DEXAMETHASONE [Suspect]
     Route: 042
     Dates: start: 20120510
  11. DEXAMETHASONE [Suspect]
     Route: 042
     Dates: start: 20120619
  12. DEXAMETHASONE [Suspect]
     Route: 042
     Dates: start: 20120730
  13. DEXAMETHASONE [Suspect]
     Route: 042
     Dates: start: 20120903
  14. DEXAMETHASONE [Suspect]
     Route: 042
     Dates: start: 20121015
  15. KARDEGIC [Concomitant]
     Route: 048
  16. AMLOR [Concomitant]
     Indication: MYOCARDIAL ISCHAEMIA
     Route: 048
  17. ATENOLOL [Concomitant]
     Indication: MYOCARDIAL ISCHAEMIA
     Route: 048
  18. DIAMICRON [Concomitant]
     Indication: TYPE 2 DIABETES MELLITUS
     Route: 048
  19. ACTONEL [Concomitant]
     Route: 065
  20. OMEXEL L.P. [Concomitant]
     Route: 065
  21. FIXICAL [Concomitant]
     Route: 065
  22. CORDARONE [Concomitant]
     Route: 065
  23. RITUXIMAB [Suspect]
     Indication: MANTLE CELL LYMPHOMA
     Route: 041
     Dates: start: 20120404, end: 20121215
  24. RITUXIMAB [Suspect]
     Route: 042
     Dates: start: 20120510
  25. RITUXIMAB [Suspect]
     Route: 042
     Dates: start: 20120619
  26. RITUXIMAB [Suspect]
     Route: 042
     Dates: start: 20120730
  27. RITUXIMAB [Suspect]
     Route: 042
     Dates: start: 20120903
  28. RITUXIMAB [Suspect]
     Route: 042
     Dates: start: 20121015
  29. BENDAMUSTINE [Suspect]
     Indication: MANTLE CELL LYMPHOMA
     Dosage: DOSE : 2.5 MG / ML, POUDRE POUR SOLUTION A DILUER POUR PERFUSION
     Route: 041
     Dates: start: 20120404, end: 20121216
  30. BENDAMUSTINE [Suspect]
     Route: 041
     Dates: start: 20120510
  31. BENDAMUSTINE [Suspect]
     Route: 041
     Dates: start: 20120619
  32. BENDAMUSTINE [Suspect]
     Route: 041
     Dates: start: 20120730

REACTIONS (2)
  - Febrile bone marrow aplasia [Recovered/Resolved]
  - Pulmonary sepsis [Recovered/Resolved]
